FAERS Safety Report 10618159 (Version 1)
Quarter: 2014Q4

REPORT INFORMATION
  Report Type: Spontaneous
  Country: DE (occurrence: DE)
  Receive Date: 20141202
  Receipt Date: 20141202
  Transmission Date: 20150529
  Serious: Yes (Other)
  Sender: FDA-Public Use
  Company Number: DE-DRREDDYS-GER/GER/14/0044676

PATIENT
  Age: 33 Year
  Sex: Female
  Weight: 80 kg

DRUGS (13)
  1. QUILONUM [Suspect]
     Active Substance: LITHIUM CARBONATE
     Indication: BIPOLAR DISORDER
     Route: 048
     Dates: start: 20120604, end: 20130309
  2. PROTAPHANE [Concomitant]
     Active Substance: INSULIN HUMAN
     Indication: GESTATIONAL DIABETES
     Route: 058
  3. LAMOTRIGINE. [Suspect]
     Active Substance: LAMOTRIGINE
     Indication: BIPOLAR DISORDER
     Route: 048
     Dates: start: 20120604, end: 20130309
  4. METFORMIN [Concomitant]
     Active Substance: METFORMIN HYDROCHLORIDE
     Indication: POLYCYSTIC OVARIES
     Route: 048
     Dates: start: 20120604, end: 20120724
  5. CELESTAN [Concomitant]
     Active Substance: BETAMETHASONE
     Indication: MATERNAL THERAPY TO ENHANCE FOETAL LUNG MATURITY
     Route: 030
     Dates: start: 20130116, end: 20130117
  6. PARTUSISTEN [Concomitant]
     Active Substance: FENOTEROL
     Indication: PREMATURE LABOUR
     Route: 042
     Dates: start: 20130111, end: 20130111
  7. SEROQUEL [Suspect]
     Active Substance: QUETIAPINE FUMARATE
     Indication: BIPOLAR DISORDER
     Route: 048
     Dates: start: 20120604, end: 20130309
  8. CYTOTEC [Concomitant]
     Active Substance: MISOPROSTOL
     Indication: LABOUR INDUCTION
     Route: 048
     Dates: start: 20130308, end: 20130308
  9. AMOXYPEN [Concomitant]
     Active Substance: AMOXICILLIN
     Indication: C-REACTIVE PROTEIN INCREASED
     Route: 048
  10. CEFUROXIM [Concomitant]
     Active Substance: CEFUROXIME
     Indication: INFECTION PROPHYLAXIS
     Route: 042
     Dates: start: 20130308, end: 20130308
  11. FOLSAEURE [Concomitant]
     Active Substance: FOLIC ACID
     Indication: PROPHYLAXIS OF NEURAL TUBE DEFECT
     Route: 048
     Dates: start: 20120604, end: 20130309
  12. SERTRALINE [Suspect]
     Active Substance: SERTRALINE HYDROCHLORIDE
     Indication: BIPOLAR DISORDER
     Route: 048
     Dates: start: 20120604, end: 20130309
  13. LEVOTHYROXINE SODIUM. [Concomitant]
     Active Substance: LEVOTHYROXINE SODIUM
     Indication: HYPOTHYROIDISM
     Route: 048
     Dates: start: 20120604, end: 20130309

REACTIONS (5)
  - Polyhydramnios [Unknown]
  - Premature labour [Unknown]
  - Exposure during pregnancy [Unknown]
  - Gestational diabetes [Unknown]
  - Caesarean section [Unknown]
